FAERS Safety Report 6017162-5 (Version None)
Quarter: 2008Q4

REPORT INFORMATION
  Report Type: 
  Country: None (occurrence: None)
  Receive Date: 20081223
  Receipt Date: 20081218
  Transmission Date: 20090506
  Serious: Yes (Other)
  Sender: FDA-Public Use
  Company Number: SE-BRISTOL-MYERS SQUIBB COMPANY-14449573

PATIENT
  Age: 70 Year
  Sex: Female

DRUGS (3)
  1. HYDREA [Suspect]
     Indication: SPLENOMEGALY
     Route: 048
     Dates: start: 20081104, end: 20081206
  2. ARANESP [Concomitant]
     Indication: POLYCYTHAEMIA VERA
  3. ARANESP [Concomitant]

REACTIONS (1)
  - ALVEOLITIS [None]
